FAERS Safety Report 20699921 (Version 1)
Quarter: 2022Q2

REPORT INFORMATION
  Report Type: Report from Study
  Country: IN (occurrence: IN)
  Receive Date: 20220412
  Receipt Date: 20220412
  Transmission Date: 20220720
  Serious: Yes (Other)
  Sender: FDA-Public Use
  Company Number: IN-NOVARTISPH-NVSC2021IN007731

PATIENT
  Age: 35 Year
  Sex: Female

DRUGS (14)
  1. SIMULECT [Suspect]
     Active Substance: BASILIXIMAB
     Indication: Renal transplant
     Dosage: 20 MG (DAY 0)
     Route: 065
     Dates: start: 20201121
  2. SIMULECT [Suspect]
     Active Substance: BASILIXIMAB
     Dosage: 20 MG (DAY 04)
     Route: 065
     Dates: start: 20201125
  3. MYCORAL [Concomitant]
     Indication: Product used for unknown indication
     Dosage: UNK UNK, BID
     Route: 065
  4. DILTIAZEM [Concomitant]
     Active Substance: DILTIAZEM
     Indication: Product used for unknown indication
     Dosage: UNK, QD
     Route: 065
  5. PROLOMET [Concomitant]
     Indication: Product used for unknown indication
     Dosage: UNK UNK, QD
     Route: 065
  6. SOLU-MEDROL [Concomitant]
     Active Substance: METHYLPREDNISOLONE SODIUM SUCCINATE
     Indication: Product used for unknown indication
     Dosage: 3 DOSAGE FORM, QD
     Route: 065
  7. SEPTRAN [Concomitant]
     Indication: Product used for unknown indication
     Dosage: UNK, QD
     Route: 065
  8. DOMSTAL [Concomitant]
     Indication: Product used for unknown indication
     Dosage: UNK, QD
     Route: 065
  9. PREDNISOLONE [Concomitant]
     Active Substance: PREDNISOLONE
     Indication: Product used for unknown indication
     Dosage: UNK, QD
     Route: 065
  10. CANDID [Concomitant]
     Indication: Product used for unknown indication
     Dosage: UNK
     Route: 065
  11. HEXIDINE MOUTHWASH [Concomitant]
     Indication: Product used for unknown indication
     Dosage: UNK
     Route: 065
  12. FORZID TZ [Concomitant]
     Indication: Product used for unknown indication
     Dosage: UNK, BID
     Route: 042
  13. ASPIRIN [Concomitant]
     Active Substance: ASPIRIN
     Indication: Product used for unknown indication
     Dosage: UNK, QD
     Route: 065
  14. POTRATE [Concomitant]
     Indication: Product used for unknown indication
     Dosage: 10 ML, BID
     Route: 065

REACTIONS (11)
  - Kidney transplant rejection [Not Recovered/Not Resolved]
  - Nephrosclerosis [Unknown]
  - Glomerulonephritis [Unknown]
  - Renal tubular injury [Unknown]
  - Transplant rejection [Unknown]
  - Glomerulonephritis chronic [Unknown]
  - Henoch-Schonlein purpura nephritis [Unknown]
  - Arteritis [Unknown]
  - Proteinuria [Unknown]
  - Focal segmental glomerulosclerosis [Unknown]
  - Memory impairment [Unknown]

NARRATIVE: CASE EVENT DATE: 20201216
